FAERS Safety Report 4912566-3 (Version None)
Quarter: 2006Q1

REPORT INFORMATION
  Report Type: 
  Country: None (occurrence: None)
  Receive Date: 20060215
  Receipt Date: 20060112
  Transmission Date: 20060701
  Serious: Yes (Hospitalization, Other)
  Sender: FDA-Public Use
  Company Number: US-GLAXOSMITHKLINE-A0589020A

PATIENT
  Age: 3 Year
  Sex: Male
  Weight: 13.3 kg

DRUGS (3)
  1. TABLOID [Suspect]
     Dosage: 40MG PER DAY
     Route: 048
     Dates: start: 20051220, end: 20060101
  2. CYTARABINE [Concomitant]
  3. CYCLOPHOSPHAMIDE [Concomitant]

REACTIONS (13)
  - ABDOMINAL PAIN [None]
  - ANOREXIA [None]
  - ASCITES [None]
  - FACE OEDEMA [None]
  - HEPATIC ENZYME INCREASED [None]
  - HEPATOMEGALY [None]
  - JAUNDICE [None]
  - NAUSEA [None]
  - NEUTROPENIA [None]
  - PYREXIA [None]
  - SPLENOMEGALY [None]
  - THROMBOCYTOPENIA [None]
  - VENOOCCLUSIVE LIVER DISEASE [None]
